FAERS Safety Report 8812267 (Version 1)
Quarter: 2012Q4

REPORT INFORMATION
  Report Type: 
  Country: US (occurrence: US)
  Receive Date: 20120927
  Receipt Date: 20120927
  Transmission Date: 20130627
  Serious: Yes (Death, Other)
  Sender: FDA-Public Use
  Company Number: US-ROCHE-1123268

PATIENT
  Sex: Male

DRUGS (7)
  1. AVASTIN [Suspect]
     Indication: COLON CANCER
     Route: 065
  2. XELODA [Suspect]
     Indication: PRODUCT USED FOR UNKNOWN INDICATION
     Route: 065
     Dates: start: 20040317
  3. OXALIPLATIN [Concomitant]
     Route: 065
     Dates: start: 20031208
  4. OXALIPLATIN [Concomitant]
     Route: 065
     Dates: start: 20040317
  5. 5-FLUOROURACIL [Concomitant]
     Route: 065
     Dates: start: 20031022
  6. LEUCOVORIN [Concomitant]
     Route: 065
     Dates: start: 20031022
  7. IRINOTECAN [Concomitant]
     Route: 065
     Dates: start: 20031022

REACTIONS (3)
  - Death [Fatal]
  - Pulmonary mass [Unknown]
  - Disease progression [Unknown]
